FAERS Safety Report 5354533-4 (Version None)
Quarter: 2007Q2

REPORT INFORMATION
  Report Type: 
  Country: None (occurrence: None)
  Receive Date: 20070608
  Receipt Date: 20070524
  Transmission Date: 20071010
  Serious: Yes (Life-Threatening, Hospitalization, Disabling, Other)
  Sender: FDA-Public Use
  Company Number: 07062128

PATIENT
  Age: 35 Year
  Sex: Female

DRUGS (1)
  1. WARFARIN SODIUM [Suspect]
     Indication: ANTICOAGULANT THERAPY
     Dosage: ORAL
     Route: 048

REACTIONS (8)
  - ABSCESS [None]
  - CARDIAC TAMPONADE [None]
  - HAEMATOMA [None]
  - HAEMORRHAGE [None]
  - INFECTION [None]
  - POST PROCEDURAL FISTULA [None]
  - ROAD TRAFFIC ACCIDENT [None]
  - WOUND DEHISCENCE [None]
